FAERS Safety Report 13023583 (Version 1)
Quarter: 2016Q4

REPORT INFORMATION
  Report Type: Spontaneous
  Country: US (occurrence: US)
  Receive Date: 20161212
  Receipt Date: 20161212
  Transmission Date: 20170207
  Serious: Yes (Disabling)
  Sender: FDA-Public Use
  Company Number: None

PATIENT
  Age: 44 Year
  Sex: Female
  Weight: 49.5 kg

DRUGS (2)
  1. ZITHROMAX [Suspect]
     Active Substance: AZITHROMYCIN DIHYDRATE
     Indication: VENTRICULAR TACHYCARDIA
     Dosage: ?          OTHER FREQUENCY:500 MGX1 THEN 250;?
     Route: 048
     Dates: start: 20140304, end: 20140305
  2. ZITHROMAX [Suspect]
     Active Substance: AZITHROMYCIN DIHYDRATE
     Indication: DRUG INTERACTION
     Dosage: ?          OTHER FREQUENCY:500 MGX1 THEN 250;?
     Route: 048
     Dates: start: 20140304, end: 20140305

REACTIONS (11)
  - Syncope [None]
  - Wound [None]
  - Blood potassium decreased [None]
  - Face injury [None]
  - Cardiac arrest [None]
  - Troponin increased [None]
  - Hypernatraemia [None]
  - Hypoxia [None]
  - Fall [None]
  - Craniocerebral injury [None]
  - Seizure [None]

NARRATIVE: CASE EVENT DATE: 20140305
